FAERS Safety Report 8022156-4 (Version None)
Quarter: 2012Q1

REPORT INFORMATION
  Report Type: 
  Country: None (occurrence: None)
  Receive Date: 20120104
  Receipt Date: 20111226
  Transmission Date: 20120608
  Serious: Yes (Hospitalization)
  Sender: FDA-Public Use
  Company Number: BR-ASTRAZENECA-2011SE78323

PATIENT
  Age: 68 Year
  Sex: Male
  Weight: 72 kg

DRUGS (3)
  1. SIMVASTATIN [Concomitant]
     Dates: end: 20111201
  2. ATACAND HCT [Suspect]
     Indication: HYPERTENSION
     Dosage: 16 / 5 MG OD
     Route: 048
     Dates: start: 20100101
  3. CRESTOR [Suspect]
     Indication: DYSLIPIDAEMIA
     Dosage: OD
     Route: 048
     Dates: start: 20100101

REACTIONS (4)
  - CORONARY ARTERY OCCLUSION [None]
  - PROSTATE CANCER [None]
  - BLOOD TRIGLYCERIDES INCREASED [None]
  - BLOOD CHOLESTEROL INCREASED [None]
